FAERS Safety Report 7027346-5 (Version None)
Quarter: 2010Q4

REPORT INFORMATION
  Report Type: 
  Country: None (occurrence: None)
  Receive Date: 20101004
  Receipt Date: 20100924
  Transmission Date: 20110411
  Serious: Yes (Other)
  Sender: FDA-Public Use
  Company Number: PHHY2010JP44774

PATIENT
  Sex: Male

DRUGS (2)
  1. RITALIN [Suspect]
     Indication: DEPRESSION
     Dosage: 3 DF, QD
     Route: 048
  2. RITALIN [Suspect]
     Dosage: 10 DF, QD
     Route: 048

REACTIONS (5)
  - DRUG DEPENDENCE [None]
  - FEELING ABNORMAL [None]
  - QUALITY OF LIFE DECREASED [None]
  - SUICIDAL IDEATION [None]
  - SUICIDE ATTEMPT [None]
